FAERS Safety Report 6943617-2 (Version None)
Quarter: 2010Q3

REPORT INFORMATION
  Report Type: 
  Country: None (occurrence: None)
  Receive Date: 20100826
  Receipt Date: 20100818
  Transmission Date: 20110219
  Serious: Yes (Disabling)
  Sender: FDA-Public Use
  Company Number: JP-ABBOTT-10P-087-0665361-00

PATIENT
  Age: 57 Year
  Sex: Male

DRUGS (8)
  1. NORVIR [Suspect]
     Indication: HIV INFECTION
     Dosage: 100 MG DAILY
     Route: 048
     Dates: end: 20090707
  2. ATAZANAVIR SULFATE [Concomitant]
     Indication: HIV INFECTION
     Dosage: 300 MG DAILY
     Route: 048
     Dates: end: 20090707
  3. TRUVADA [Concomitant]
     Indication: HIV INFECTION
     Dosage: 1 TABLET DAILY
     Route: 048
  4. AZITHROMYCIN HYDRATE [Concomitant]
     Indication: OPPORTUNISTIC INFECTION PROPHYLAXIS
     Route: 048
  5. KALETRA [Concomitant]
     Indication: HIV INFECTION
     Dosage: 4 TABLETS DAILY
     Route: 048
     Dates: start: 20090707
  6. RIFABUTIN [Concomitant]
     Indication: TUBERCULOSIS
     Dosage: 150 MG DAILY
     Route: 048
     Dates: start: 20090630
  7. SULFAMETHOXAZOLE AND TRIMETHOPRIM [Concomitant]
     Indication: ANTIFUNGAL PROPHYLAXIS
     Dosage: 1000 MG DAILY
     Route: 048
  8. VALACYCLOVIR [Concomitant]
     Indication: HERPES VIRUS INFECTION
     Route: 048
     Dates: start: 20090608, end: 20090614

REACTIONS (1)
  - MENINGITIS TUBERCULOUS [None]
